FAERS Safety Report 23854014 (Version 2)
Quarter: 2025Q3

REPORT INFORMATION
  Report Type: Spontaneous
  Country: EU (occurrence: EU)
  Receive Date: 20240514
  Receipt Date: 20250826
  Transmission Date: 20251020
  Serious: Yes (Life-Threatening)
  Sender: TEVA
  Company Number: EU-TEVA-VS-3197863

PATIENT

DRUGS (1)
  1. LAMOTRIGINE [Suspect]
     Active Substance: LAMOTRIGINE
     Indication: Product used for unknown indication
     Route: 065

REACTIONS (3)
  - Apnoeic attack [Recovered/Resolved]
  - Cyanosis [Recovered/Resolved]
  - Exposure via breast milk [Unknown]
